FAERS Safety Report 24443998 (Version 2)
Quarter: 2024Q4

REPORT INFORMATION
  Report Type: Report from Study
  Country: CA (occurrence: CA)
  Receive Date: 20241016
  Receipt Date: 20241017
  Transmission Date: 20250114
  Serious: No
  Sender: ROCHE
  Company Number: CA-ROCHE-2510434

PATIENT
  Age: 59 Year
  Sex: Male

DRUGS (19)
  1. RITUXAN [Suspect]
     Active Substance: RITUXIMAB
     Indication: Granulomatosis with polyangiitis
     Dosage: DAY 1, 15
     Route: 041
     Dates: start: 20191219, end: 20200127
  2. RITUXAN [Suspect]
     Active Substance: RITUXIMAB
     Route: 042
     Dates: start: 20201119, end: 20211102
  3. RITUXAN [Suspect]
     Active Substance: RITUXIMAB
     Dosage: FREQUENCY TEXT:SINGLE INFUSION
     Route: 042
     Dates: start: 20220414, end: 20230614
  4. ADALAT [Concomitant]
     Active Substance: NIFEDIPINE
  5. ATORVASTATIN [Concomitant]
     Active Substance: ATORVASTATIN
  6. DIPYRIDAMOLE [Concomitant]
     Active Substance: DIPYRIDAMOLE
  7. DULOXETINE [Concomitant]
     Active Substance: DULOXETINE
  8. FOLIC ACID [Concomitant]
     Active Substance: FOLIC ACID
  9. GABAPENTIN [Concomitant]
     Active Substance: GABAPENTIN
  10. PANTOPRAZOLE [Concomitant]
     Active Substance: PANTOPRAZOLE
  11. ACETAMINOPHEN\TRAMADOL [Concomitant]
     Active Substance: ACETAMINOPHEN\TRAMADOL
  12. ACETAMINOPHEN [Concomitant]
     Active Substance: ACETAMINOPHEN
     Indication: Premedication
     Route: 048
     Dates: start: 20191219
  13. ASPIRIN [Concomitant]
     Active Substance: ASPIRIN
  14. DIPHENHYDRAMINE HYDROCHLORIDE [Concomitant]
     Active Substance: DIPHENHYDRAMINE HYDROCHLORIDE
     Indication: Premedication
     Route: 048
     Dates: start: 20191219
  15. PREDNISONE [Concomitant]
     Active Substance: PREDNISONE
  16. SOLU-MEDROL [Concomitant]
     Active Substance: METHYLPREDNISOLONE SODIUM SUCCINATE
     Indication: Premedication
     Route: 042
     Dates: start: 20201119
  17. METHOTREXATE [Concomitant]
     Active Substance: METHOTREXATE
  18. WARFARIN [Concomitant]
     Active Substance: WARFARIN
     Route: 048
  19. LYRICA [Concomitant]
     Active Substance: PREGABALIN

REACTIONS (8)
  - Blood pressure fluctuation [Unknown]
  - Oxygen saturation decreased [Unknown]
  - Off label use [Unknown]
  - Heart rate decreased [Unknown]
  - Blood pressure diastolic abnormal [Unknown]
  - Blood pressure systolic abnormal [Unknown]
  - Blood pressure systolic increased [Unknown]
  - Intentional product use issue [Unknown]

NARRATIVE: CASE EVENT DATE: 20191219
